FAERS Safety Report 11464768 (Version 3)
Quarter: 2015Q3

REPORT INFORMATION
  Report Type: Spontaneous
  Country: JP (occurrence: JP)
  Receive Date: 20150906
  Receipt Date: 20150918
  Transmission Date: 20151125
  Serious: Yes (Hospitalization, Other)
  Sender: FDA-Public Use
  Company Number: JP-BRISTOL-MYERS SQUIBB COMPANY-BMS-2015-051025

PATIENT
  Age: 51 Year
  Sex: Female

DRUGS (2)
  1. SUNVEPRA [Suspect]
     Active Substance: ASUNAPREVIR
     Indication: PRODUCT USED FOR UNKNOWN INDICATION
     Dosage: UNK
     Route: 048
     Dates: start: 201410
  2. DAKLINZA [Suspect]
     Active Substance: DACLATASVIR
     Indication: PRODUCT USED FOR UNKNOWN INDICATION
     Dosage: UNK
     Route: 048
     Dates: start: 201410

REACTIONS (4)
  - Pyrexia [Recovering/Resolving]
  - Diarrhoea [Recovering/Resolving]
  - Nasopharyngitis [Recovering/Resolving]
  - Haematochezia [Recovering/Resolving]

NARRATIVE: CASE EVENT DATE: 2014
